FAERS Safety Report 9249226 (Version 1)
Quarter: 2013Q2

REPORT INFORMATION
  Report Type: Report from Study
  Country: US (occurrence: US)
  Receive Date: 20130422
  Receipt Date: 20130422
  Transmission Date: 20140414
  Serious: Yes (Disabling)
  Sender: FDA-Public Use
  Company Number: US-RB-013915-10

PATIENT
  Age: 53 Year
  Sex: Female

DRUGS (9)
  1. SUBOXONE TABLET [Suspect]
     Indication: DRUG DEPENDENCE
     Route: 060
     Dates: start: 2008, end: 201012
  2. SUBOXONE TABLET [Suspect]
     Indication: PAIN
     Dosage: TAPERED DOSES
     Route: 060
     Dates: start: 201012, end: 201012
  3. PRED FORTE [Concomitant]
     Indication: IRITIS
     Dosage: 1 DROP BOTH EYES ONCE DAILY
     Route: 047
  4. REMICADE [Concomitant]
     Indication: RHEUMATOID ARTHRITIS
     Dosage: DOSING DETAILS UNKNOWN
     Route: 065
  5. CYMBALTA [Concomitant]
     Indication: DEPRESSION
     Dosage: DOSING DETAILS UNKNOWN
     Route: 065
  6. CYMBALTA [Concomitant]
     Indication: FIBROMYALGIA
     Dosage: DOSING DETAILS UNKNOWN
     Route: 065
  7. SYNTHROID [Concomitant]
     Indication: THYROID THERAPY
     Route: 065
     Dates: start: 1980
  8. BACLOFEN [Concomitant]
     Indication: MUSCLE RELAXANT THERAPY
     Dosage: DOSING DETAILS UNKNOWN
     Route: 065
  9. ACTEMRA [Concomitant]
     Indication: RHEUMATOID ARTHRITIS
     Dosage: DOSING DETAILS UNKNOWN
     Route: 065

REACTIONS (4)
  - Visual impairment [Not Recovered/Not Resolved]
  - Iritis [Not Recovered/Not Resolved]
  - Condition aggravated [Not Recovered/Not Resolved]
  - Underdose [Recovered/Resolved]
